FAERS Safety Report 11887729 (Version 1)
Quarter: 2016Q1

REPORT INFORMATION
  Report Type: Spontaneous
  Country: GB (occurrence: GB)
  Receive Date: 20160105
  Receipt Date: 20160105
  Transmission Date: 20160526
  Serious: Yes (Death, Other)
  Sender: FDA-Public Use
  Company Number: GB-AUROBINDO-AUR-APL-2015-12013

PATIENT

DRUGS (6)
  1. VALACICLOVIR [Suspect]
     Active Substance: VALACYCLOVIR HYDROCHLORIDE
     Indication: HERPES VIRUS INFECTION
     Dosage: 500 MG, TWO TIMES A DAY
     Route: 064
     Dates: start: 20140918, end: 20140922
  2. CYCLIZINE [Suspect]
     Active Substance: CYCLIZINE
     Indication: VOMITING
     Dosage: 50 MG, 3 TIMES A DAY AS NEEDED
     Route: 064
     Dates: start: 20140901, end: 20141030
  3. MIRTAZAPINE. [Suspect]
     Active Substance: MIRTAZAPINE
     Indication: DEPRESSION
     Dosage: UNK UNK, ONCE A DAY
     Route: 064
     Dates: start: 201406
  4. TRUVADA [Suspect]
     Active Substance: EMTRICITABINE\TENOFOVIR DISOPROXIL FUMARATE
     Indication: HIV INFECTION
     Dosage: UNK UNK, ONCE A DAY
     Route: 064
     Dates: start: 200801
  5. NORVIR [Suspect]
     Active Substance: RITONAVIR
     Indication: HIV INFECTION
     Dosage: 100 MG, ONCE A DAY
     Route: 064
     Dates: start: 200801
  6. DARUNAVIR [Suspect]
     Active Substance: DARUNAVIR
     Indication: HIV INFECTION
     Dosage: 800 MG, ONCE A DAY
     Route: 064
     Dates: start: 201204

REACTIONS (5)
  - Cerebral ventricle dilatation [Fatal]
  - Skull malformation [Fatal]
  - Foetal exposure during pregnancy [Unknown]
  - Spina bifida [Fatal]
  - Abortion induced [Fatal]

NARRATIVE: CASE EVENT DATE: 20141201
